FAERS Safety Report 5550870-9 (Version None)
Quarter: 2007Q4

REPORT INFORMATION
  Report Type: 
  Country: None (occurrence: None)
  Receive Date: 20071210
  Receipt Date: 20071122
  Transmission Date: 20080405
  Serious: Yes (Hospitalization, Other)
  Sender: FDA-Public Use
  Company Number: ENC200700198

PATIENT
  Age: 70 Year
  Sex: Male

DRUGS (2)
  1. ARGATROBAN [Suspect]
     Indication: CEREBRAL THROMBOSIS
     Dosage: 20-60 MG, QD, INTRAVENOUS
     Route: 042
     Dates: start: 20071101, end: 20071107
  2. RADICUT(EDARAVONE) [Suspect]
     Indication: CEREBRAL THROMBOSIS
     Dosage: 60 MG, INTRAVENOUS
     Route: 042
     Dates: start: 20071031, end: 20071108

REACTIONS (4)
  - PNEUMONIA [None]
  - PYREXIA [None]
  - RENAL FAILURE ACUTE [None]
  - RHABDOMYOLYSIS [None]
